FAERS Safety Report 7251695-9 (Version None)
Quarter: 2011Q1

REPORT INFORMATION
  Report Type: 
  Country: None (occurrence: None)
  Receive Date: 20110128
  Receipt Date: 20110117
  Transmission Date: 20110831
  Serious: Yes (Other)
  Sender: FDA-Public Use
  Company Number: IT-ELI_LILLY_AND_COMPANY-IT200812000503

PATIENT
  Sex: Male

DRUGS (2)
  1. STRATTERA [Suspect]
     Indication: ATTENTION DEFICIT/HYPERACTIVITY DISORDER
     Dosage: 18 MG, DAILY (1/D)
     Route: 048
     Dates: start: 20080225, end: 20080917
  2. STRATTERA [Suspect]
     Dosage: 1 D/F, DAILY (1/D)
     Route: 048

REACTIONS (1)
  - ELECTROCARDIOGRAM QT PROLONGED [None]
